FAERS Safety Report 8534993-8 (Version None)
Quarter: 2012Q3

REPORT INFORMATION
  Report Type: 
  Country: None (occurrence: None)
  Receive Date: 20120724
  Receipt Date: 20120719
  Transmission Date: 20120928
  Serious: Yes (Other)
  Sender: FDA-Public Use
  Company Number: US-PFIZER INC-2012175675

PATIENT
  Sex: Female
  Weight: 105 kg

DRUGS (2)
  1. CYTOMEL [Suspect]
     Indication: HYPOTHYROIDISM
     Dosage: 5 UG, 2X/DAY
     Route: 048
     Dates: start: 20020101
  2. CYTOMEL [Suspect]
     Dosage: UNK
     Route: 048

REACTIONS (7)
  - INTERVERTEBRAL DISC DEGENERATION [None]
  - HYPERTENSION [None]
  - INTERVERTEBRAL DISC PROTRUSION [None]
  - PERONEAL NERVE PALSY [None]
  - BACK DISORDER [None]
  - NERVOUS SYSTEM DISORDER [None]
  - LIMB DISCOMFORT [None]
